FAERS Safety Report 20059691 (Version 2)
Quarter: 2021Q4

REPORT INFORMATION
  Report Type: Report from Study
  Country: AT (occurrence: AT)
  Receive Date: 20211111
  Receipt Date: 20211129
  Transmission Date: 20220303
  Serious: Yes (Hospitalization)
  Sender: FDA-Public Use
  Company Number: AT-AstraZeneca-2021A783342

PATIENT
  Sex: Male

DRUGS (7)
  1. ALPRAZOLAM [Suspect]
     Active Substance: ALPRAZOLAM
     Dosage: UNK
  2. LEVOMEPROMAZINE EMBONATE [Suspect]
     Active Substance: LEVOMEPROMAZINE EMBONATE
     Dosage: UNK
  3. BISACODYL [Suspect]
     Active Substance: BISACODYL
     Dosage: UNK
  4. ZOFRAN [Suspect]
     Active Substance: ONDANSETRON HYDROCHLORIDE
     Dosage: UNK
  5. BUPRENORPHINE [Suspect]
     Active Substance: BUPRENORPHINE
     Dosage: UNK
  6. SEROQUEL [Suspect]
     Active Substance: QUETIAPINE FUMARATE
     Dosage: 25 MG, 2X/DAY (FREQUENCY 0-0-1-1)
     Route: 048
  7. BUPRENORPHINE HYDROCHLORIDE [Suspect]
     Active Substance: BUPRENORPHINE HYDROCHLORIDE
     Dosage: UNK

REACTIONS (2)
  - Fall [Unknown]
  - Off label use [Unknown]
